FAERS Safety Report 9037121 (Version 1)
Quarter: 2012Q4

REPORT INFORMATION
  Report Type: Spontaneous
  Country: DE (occurrence: None)
  Receive Date: 20121211
  Receipt Date: 20121211
  Transmission Date: 20130627
  Serious: Yes (Other)
  Sender: FDA-Public Use
  Company Number: 2012034207

PATIENT
  Age: 77 Year

DRUGS (1)
  1. PRIVIGEN [Suspect]
     Indication: CIDP
     Dosage: 20 g qd, dosage: for 3rd time each  20g
     Dates: start: 20121107, end: 20121108

REACTIONS (1)
  - Cardiogenic shock [None]
